FAERS Safety Report 20678867 (Version 1)
Quarter: 2022Q2

REPORT INFORMATION
  Report Type: Other
  Country: US (occurrence: None)
  Receive Date: 20220406
  Receipt Date: 20220406
  Transmission Date: 20220721
  Serious: No
  Sender: FDA-Public Use
  Company Number: US-ROCHE-2936458

PATIENT
  Age: 55 Year
  Sex: Female
  Weight: 54.480 kg

DRUGS (2)
  1. OCREVUS [Suspect]
     Active Substance: OCRELIZUMAB
     Indication: Primary progressive multiple sclerosis
     Dosage: (PRESCRIBED AS INFUSE 300 MG ON DAY 1 AND 15 THEN 600 MG EVERY 6 MONTHS)?DATE OF TREATMENT: 04/FEB/2
     Route: 065
     Dates: start: 20210121
  2. OCREVUS [Suspect]
     Active Substance: OCRELIZUMAB
     Indication: Relapsing-remitting multiple sclerosis

REACTIONS (11)
  - Fatigue [Recovered/Resolved]
  - Malaise [Not Recovered/Not Resolved]
  - Therapeutic response shortened [Not Recovered/Not Resolved]
  - Hypoaesthesia [Unknown]
  - Paraesthesia [Unknown]
  - Neck pain [Unknown]
  - Back pain [Unknown]
  - Weight increased [Unknown]
  - Gait spastic [Unknown]
  - Neuropathy peripheral [Unknown]
  - Herpes zoster [Unknown]

NARRATIVE: CASE EVENT DATE: 20211012
